FAERS Safety Report 7523707-6 (Version None)
Quarter: 2011Q2

REPORT INFORMATION
  Report Type: 
  Country: None (occurrence: None)
  Receive Date: 20110603
  Receipt Date: 20110525
  Transmission Date: 20111010
  Serious: Yes (Hospitalization)
  Sender: FDA-Public Use
  Company Number: US-ASTRAZENECA-2011SE32149

PATIENT
  Age: 74 Year
  Sex: Male
  Weight: 86.2 kg

DRUGS (1)
  1. PULMICORT [Suspect]
     Indication: CHRONIC OBSTRUCTIVE PULMONARY DISEASE
     Route: 055
     Dates: start: 20070101

REACTIONS (4)
  - BRONCHITIS [None]
  - EXPIRED DRUG ADMINISTERED [None]
  - DIPLOPIA [None]
  - PULMONARY CONGESTION [None]
